FAERS Safety Report 8309529-7 (Version None)
Quarter: 2012Q2

REPORT INFORMATION
  Report Type: 
  Country: None (occurrence: None)
  Receive Date: 20120425
  Receipt Date: 20120418
  Transmission Date: 20120825
  Serious: No
  Sender: FDA-Public Use
  Company Number: US-PFIZER INC-2012081803

PATIENT
  Sex: Female
  Weight: 63.5 kg

DRUGS (6)
  1. SYNTHROID [Concomitant]
     Indication: THYROID DISORDER
     Dosage: ONE DAY 88MG, ANOTHER DAY 100MG
  2. LYRICA [Interacting]
     Dosage: 75 MG, DAILY
     Route: 048
  3. LYRICA [Interacting]
     Dosage: 100 MG, DAILY
     Route: 048
  4. IBUPROFEN [Interacting]
     Indication: ARTHROPATHY
     Dosage: UNK
  5. TYLENOL (CAPLET) [Interacting]
     Indication: PAIN
     Dosage: UNK
  6. LYRICA [Suspect]
     Indication: NEUROPATHY PERIPHERAL
     Dosage: 50 MG, DAILY
     Route: 048
     Dates: start: 20111101

REACTIONS (9)
  - WEIGHT INCREASED [None]
  - MUSCULOSKELETAL STIFFNESS [None]
  - INSOMNIA [None]
  - FATIGUE [None]
  - PARAESTHESIA [None]
  - PAIN [None]
  - ASTHENIA [None]
  - DRUG INTERACTION [None]
  - DYSPNOEA [None]
